FAERS Safety Report 19710118 (Version 2)
Quarter: 2021Q3

REPORT INFORMATION
  Report Type: Report from Study
  Country: CN (occurrence: CN)
  Receive Date: 20210817
  Receipt Date: 20210917
  Transmission Date: 20211014
  Serious: Yes (Hospitalization)
  Sender: FDA-Public Use
  Company Number: CN-PFIZER INC-202101017620

PATIENT
  Age: 61 Year
  Sex: Male
  Weight: 64 kg

DRUGS (3)
  1. ANZATAX [PACLITAXEL] [Suspect]
     Active Substance: PACLITAXEL
     Indication: SQUAMOUS CELL CARCINOMA OF LUNG
     Dosage: 305 MG, 1X/3 WEEKS, INTRAVENOUS INFUSION
     Dates: start: 20210716, end: 20210716
  2. BLINDED THERAPY [Suspect]
     Active Substance: INVESTIGATIONAL PRODUCT
     Indication: SQUAMOUS CELL CARCINOMA OF LUNG
     Dosage: IVGTT, EVERY 3 WEEKS
     Dates: start: 20210715, end: 20210715
  3. BO BEI [Suspect]
     Active Substance: CARBOPLATIN
     Indication: SQUAMOUS CELL CARCINOMA OF LUNG
     Dosage: 678 MG, 1X/3 WEEKS, INTRAVENOUS INFUSION
     Dates: start: 20210716, end: 20210716

REACTIONS (2)
  - Chest discomfort [Recovered/Resolved]
  - Haemoptysis [Recovered/Resolved]

NARRATIVE: CASE EVENT DATE: 20210728
